FAERS Safety Report 4811495-3 (Version None)
Quarter: 2005Q4

REPORT INFORMATION
  Report Type: 
  Country: None (occurrence: None)
  Receive Date: 20051027
  Receipt Date: 20051021
  Transmission Date: 20060501
  Serious: Yes (Hospitalization, Other)
  Sender: FDA-Public Use
  Company Number: PHBS2005BR15688

PATIENT
  Age: 29 Year
  Sex: Female
  Weight: 81 kg

DRUGS (3)
  1. METHERGINE [Suspect]
     Indication: UTERINE ATONY
     Dosage: 0.125 MG, Q8H
     Route: 048
     Dates: start: 20051018, end: 20051019
  2. TYLENOL (CAPLET) [Concomitant]
     Indication: PAIN
     Dosage: 750 MG/DAY
     Route: 048
     Dates: start: 20051019, end: 20051021
  3. BUPRENORPHINE [Concomitant]
     Indication: PAIN
     Route: 060
     Dates: start: 20051019, end: 20051021

REACTIONS (3)
  - EYELID OEDEMA [None]
  - OEDEMA MOUTH [None]
  - RASH [None]
